FAERS Safety Report 4841288-2 (Version None)
Quarter: 2005Q4

REPORT INFORMATION
  Report Type: 
  Country: None (occurrence: None)
  Receive Date: 20051130
  Receipt Date: 20051107
  Transmission Date: 20060501
  Serious: Yes (Hospitalization, Other)
  Sender: FDA-Public Use
  Company Number: PHBS2005BR16466

PATIENT
  Sex: Female
  Weight: 57 kg

DRUGS (5)
  1. FORASEQ [Suspect]
     Indication: CHRONIC OBSTRUCTIVE PULMONARY DISEASE
     Dosage: 8 CAPS/DAY
  2. FORASEQ [Suspect]
     Dosage: 12/400 MCG; 8 CAPS/DAY
  3. BEROTEC [Concomitant]
     Indication: CHRONIC OBSTRUCTIVE PULMONARY DISEASE
  4. PURAN T4 [Concomitant]
     Indication: THYROID DISORDER
  5. ATROVENT [Concomitant]
     Indication: CHRONIC OBSTRUCTIVE PULMONARY DISEASE

REACTIONS (4)
  - CATARACT [None]
  - DEAFNESS UNILATERAL [None]
  - DYSPNOEA [None]
  - EMPHYSEMA [None]
